FAERS Safety Report 4464706-0 (Version None)
Quarter: 2004Q3

REPORT INFORMATION
  Report Type: 
  Country: None (occurrence: None)
  Receive Date: 20040929
  Receipt Date: 20040915
  Transmission Date: 20050211
  Serious: Yes (Hospitalization, Other)
  Sender: FDA-Public Use
  Company Number: USA040978479

PATIENT
  Sex: Female

DRUGS (3)
  1. FORTEO [Suspect]
     Dates: start: 20030101
  2. CALCIUM [Concomitant]
  3. VITAMIN D [Concomitant]

REACTIONS (2)
  - BLOOD CALCIUM DECREASED [None]
  - PRESCRIBED OVERDOSE [None]
